FAERS Safety Report 17939636 (Version 1)
Quarter: 2020Q2

REPORT INFORMATION
  Report Type: Report from Study
  Country: CA (occurrence: CA)
  Receive Date: 20200624
  Receipt Date: 20200624
  Transmission Date: 20200714
  Serious: Yes (Other)
  Sender: FDA-Public Use
  Company Number: CA-JNJFOC-20200528975

PATIENT
  Sex: Female
  Weight: 72.64 kg

DRUGS (1)
  1. REMICADE [Suspect]
     Active Substance: INFLIXIMAB
     Indication: BEHCET^S SYNDROME
     Route: 042

REACTIONS (5)
  - Therapeutic product effect decreased [Unknown]
  - Eye disorder [Unknown]
  - Behcet^s syndrome [Unknown]
  - Basal cell carcinoma [Unknown]
  - Fall [Unknown]

NARRATIVE: CASE EVENT DATE: 2020
